FAERS Safety Report 17507953 (Version 1)
Quarter: 2020Q1

REPORT INFORMATION
  Report Type: Spontaneous
  Country: CN (occurrence: CN)
  Receive Date: 20200306
  Receipt Date: 20200306
  Transmission Date: 20200409
  Serious: Yes (Other)
  Sender: FDA-Public Use
  Company Number: NVSC2020CN062972

PATIENT

DRUGS (2)
  1. PREDNISOLONE. [Suspect]
     Active Substance: PREDNISOLONE
     Indication: LUPUS NEPHRITIS
     Dosage: UNK
     Route: 065
  2. MYCOPHENOLATE MOFETIL. [Suspect]
     Active Substance: MYCOPHENOLATE MOFETIL
     Indication: LUPUS NEPHRITIS
     Dosage: UNK
     Route: 065

REACTIONS (2)
  - Leukopenia [Recovered/Resolved]
  - Product use in unapproved indication [Unknown]
